FAERS Safety Report 6591255-6 (Version None)
Quarter: 2010Q1

REPORT INFORMATION
  Report Type: 
  Country: None (occurrence: None)
  Receive Date: 20100219
  Receipt Date: 20100217
  Transmission Date: 20100710
  Serious: Yes (Death)
  Sender: FDA-Public Use
  Company Number: PHHY2010AU08394

PATIENT
  Sex: Female

DRUGS (5)
  1. ACLASTA [Suspect]
     Indication: OSTEOPOROSIS
     Dosage: UNK
     Dates: start: 20070901
  2. METHOTREXATE [Concomitant]
     Dosage: 5 MG, UNK
     Route: 048
     Dates: start: 20000101
  3. PLAQUENIL [Concomitant]
     Dosage: 40 G, UNK
     Route: 048
     Dates: start: 20000101
  4. MADOPAR [Concomitant]
     Dosage: UNK
     Dates: start: 20040101
  5. PREDNISOLONE [Concomitant]
     Dosage: 5 MG, UNK
     Route: 048
     Dates: start: 20000101

REACTIONS (1)
  - MYOCARDIAL ISCHAEMIA [None]
